FAERS Safety Report 7525523-8 (Version None)
Quarter: 2011Q2

REPORT INFORMATION
  Report Type: 
  Country: None (occurrence: None)
  Receive Date: 20110526
  Receipt Date: 20110520
  Transmission Date: 20111010
  Serious: Yes (Hospitalization)
  Sender: FDA-Public Use
  Company Number: 2011PV000027

PATIENT
  Age: 36 Year
  Sex: Female

DRUGS (8)
  1. MEDROL [Suspect]
     Indication: DIFFUSE LARGE B-CELL LYMPHOMA
     Dosage: 160 MG;IV
     Route: 042
     Dates: start: 20110214, end: 20110308
  2. SOLU-MEDROL [Suspect]
     Indication: DIFFUSE LARGE B-CELL LYMPHOMA
     Dosage: 320 MG;IV
     Route: 042
     Dates: start: 20110210, end: 20110306
  3. ENDOXAN /00021101/ (CYCLOPHOSPHAMIDE) [Suspect]
     Indication: DIFFUSE LARGE B-CELL LYMPHOMA
     Dosage: 2220 MG;IV
     Route: 042
     Dates: start: 20110211, end: 20110306
  4. METHOTREXATE [Suspect]
     Indication: DIFFUSE LARGE B-CELL LYMPHOMA
     Dosage: 4500 MG;IV
     Route: 042
     Dates: start: 20110210, end: 20110303
  5. DEPOCYT [Suspect]
     Indication: DIFFUSE LARGE B-CELL LYMPHOMA
     Dosage: 50 MG;INTH
     Route: 037
     Dates: start: 20110211, end: 20110304
  6. RITUXIMAB (RITUXIMAB) [Suspect]
     Indication: DIFFUSE LARGE B-CELL LYMPHOMA
     Dosage: 560 MG;IV
     Route: 042
     Dates: start: 20110209, end: 20110302
  7. DOXORUBICIN HCL [Suspect]
     Indication: DIFFUSE LARGE B-CELL LYMPHOMA
     Dosage: 90 MG;IV
     Route: 042
     Dates: start: 20110211, end: 20110304
  8. VINCRISTINE [Suspect]
     Indication: DIFFUSE LARGE B-CELL LYMPHOMA
     Dosage: 2 MG;IV
     Route: 042
     Dates: start: 20110210, end: 20110303

REACTIONS (1)
  - CEREBRAL VENOUS THROMBOSIS [None]
